FAERS Safety Report 9658875 (Version 1)
Quarter: 2013Q4

REPORT INFORMATION
  Report Type: Report from Study
  Country: CA (occurrence: CA)
  Receive Date: 20131030
  Receipt Date: 20131030
  Transmission Date: 20140711
  Serious: Yes (Hospitalization, Other)
  Sender: FDA-Public Use
  Company Number: CA-US-EMD SERONO, INC.-7245186

PATIENT
  Age: 6 Decade
  Sex: Female

DRUGS (4)
  1. REBIF [Suspect]
     Indication: RELAPSING-REMITTING MULTIPLE SCLEROSIS
     Route: 058
     Dates: start: 200611
  2. REBIF [Suspect]
     Route: 058
     Dates: end: 201309
  3. SULFASALAZINE [Concomitant]
     Indication: PRODUCT USED FOR UNKNOWN INDICATION
  4. PREDNISONE [Concomitant]
     Indication: PRODUCT USED FOR UNKNOWN INDICATION

REACTIONS (9)
  - Cardiac infection [Unknown]
  - Skin discolouration [Recovering/Resolving]
  - Skin erosion [Recovering/Resolving]
  - Wound [Recovering/Resolving]
  - Urinary tract infection [Unknown]
  - Injection site discolouration [Recovered/Resolved]
  - Injection site ulcer [Unknown]
  - Arthralgia [Unknown]
  - Injection site infection [Recovered/Resolved]
